FAERS Safety Report 23310110 (Version 1)
Quarter: 2023Q4

REPORT INFORMATION
  Report Type: Spontaneous
  Country: US (occurrence: None)
  Receive Date: 20231218
  Receipt Date: 20231218
  Transmission Date: 20240110
  Serious: Yes (Hospitalization)
  Sender: FDA-Public Use
  Company Number: None

PATIENT
  Sex: Female

DRUGS (3)
  1. CAPECITABINE [Suspect]
     Active Substance: CAPECITABINE
     Indication: Metastases to central nervous system
     Dosage: TAKE 4 TABLETS BY MOUTH TWO TIMES DAILY FOR 7 DAYS ON AND 7 DAYS OFF
     Route: 048
     Dates: start: 202309
  2. VERZENIO [Concomitant]
     Active Substance: ABEMACICLIB
  3. CAPECITABINE [Suspect]
     Active Substance: CAPECITABINE
     Indication: Breast cancer female

REACTIONS (1)
  - Brain operation [None]
